FAERS Safety Report 6440001-5 (Version None)
Quarter: 2009Q4

REPORT INFORMATION
  Report Type: 
  Country: None (occurrence: None)
  Receive Date: 20091112
  Receipt Date: 20091112
  Transmission Date: 20100525
  Serious: Yes (Hospitalization)
  Sender: FDA-Public Use
  Company Number: None

PATIENT
  Age: 79 Year
  Sex: Female
  Weight: 63.9572 kg

DRUGS (13)
  1. MEGACE ES [Suspect]
     Indication: ABNORMAL LOSS OF WEIGHT
     Dosage: 5ML -625MG- DAILY PO
     Route: 048
     Dates: start: 20091011, end: 20091110
  2. CITALOPRAM [Concomitant]
  3. CRANBERRY [Concomitant]
  4. GLIMEPPIRIDE [Concomitant]
  5. LACTULOSE [Concomitant]
  6. METFORMIN HCL [Concomitant]
  7. PRAVASTATIN [Concomitant]
  8. DOCUSATE SODIUM [Concomitant]
  9. FERROUS GLUCONATE [Concomitant]
  10. LISINOPRIL [Concomitant]
  11. OSCAL [Concomitant]
  12. IBUPROFEN [Concomitant]
  13. MACROBID [Concomitant]

REACTIONS (1)
  - DEEP VEIN THROMBOSIS [None]
